FAERS Safety Report 4357210-1 (Version None)
Quarter: 2004Q2

REPORT INFORMATION
  Report Type: 
  Country: None (occurrence: None)
  Receive Date: 20040511
  Receipt Date: 20040511
  Transmission Date: 20050107
  Serious: Yes (Hospitalization)
  Sender: FDA-Public Use
  Company Number: None

PATIENT
  Age: 68 Year
  Sex: Male
  Weight: 74 kg

DRUGS (2)
  1. CISPLATIN [Suspect]
     Indication: TONGUE NEOPLASM MALIGNANT STAGE UNSPECIFIED
     Dosage: DAY 1 + 22 2 DOSES  ONLY INTRAVENOUS
     Route: 042
     Dates: start: 20040315, end: 20040405
  2. RADIATION TO BASE OF TONGUE [Suspect]
     Indication: TONGUE NEOPLASM MALIGNANT STAGE UNSPECIFIED
     Dosage: 180CGY DAILY OTHER
     Route: 050
     Dates: start: 20040315, end: 20040407

REACTIONS (8)
  - ATRIAL FIBRILLATION [None]
  - BLOOD CREATININE ABNORMAL [None]
  - DEHYDRATION [None]
  - HYPOCALCAEMIA [None]
  - HYPOMAGNESAEMIA [None]
  - HYPONATRAEMIA [None]
  - INAPPROPRIATE ANTIDIURETIC HORMONE SECRETION [None]
  - STOMATITIS [None]
